FAERS Safety Report 10875268 (Version 2)
Quarter: 2015Q1

REPORT INFORMATION
  Report Type: Report from Study
  Country: DE (occurrence: DE)
  Receive Date: 20150227
  Receipt Date: 20150319
  Transmission Date: 20150721
  Serious: Yes (Death)
  Sender: FDA-Public Use
  Company Number: DE-ACTELION-A-US2015-113775

PATIENT
  Age: 50 Year
  Sex: Female

DRUGS (1)
  1. VENTAVIS [Suspect]
     Active Substance: ILOPROST
     Indication: PULMONARY ARTERIAL HYPERTENSION
     Dosage: 2.5 MCG, 6ID
     Route: 055
     Dates: start: 20150129

REACTIONS (2)
  - Pulmonary hypertension [Fatal]
  - Interstitial lung disease [Fatal]

NARRATIVE: CASE EVENT DATE: 20150205
